FAERS Safety Report 11487721 (Version 2)
Quarter: 2015Q4

REPORT INFORMATION
  Report Type: Spontaneous
  Country: US (occurrence: US)
  Receive Date: 20150910
  Receipt Date: 20151001
  Transmission Date: 20160304
  Serious: No
  Sender: FDA-Public Use
  Company Number: US-BAYER-2015-419622

PATIENT
  Age: 44 Year
  Sex: Female
  Weight: 56.69 kg

DRUGS (1)
  1. MIRALAX [Suspect]
     Active Substance: POLYETHYLENE GLYCOL 3350
     Indication: CONSTIPATION
     Dosage: 1 DF, QD
     Route: 048
     Dates: start: 201505

REACTIONS (2)
  - Product physical issue [None]
  - Product use issue [Unknown]

NARRATIVE: CASE EVENT DATE: 201505
